FAERS Safety Report 8407535-5 (Version None)
Quarter: 2012Q2

REPORT INFORMATION
  Report Type: 
  Country: None (occurrence: None)
  Receive Date: 20120604
  Receipt Date: 20120531
  Transmission Date: 20120825
  Serious: Yes (Death)
  Sender: FDA-Public Use
  Company Number: PT-BAYER-2012-014918

PATIENT
  Age: 68 Year
  Sex: Male

DRUGS (7)
  1. ALLOPURINOL [Concomitant]
     Dosage: 100 MG, UNK
     Dates: start: 20050101
  2. ASPIRIN [Concomitant]
     Dosage: 100 MG, UNK
     Dates: start: 20050101
  3. HYDROCHLOROTHIAZIDE W/RAMIPRIL [Concomitant]
     Dosage: 5 MG, UNK
     Dates: start: 20000101
  4. NEXAVAR [Suspect]
     Indication: HEPATIC NEOPLASM MALIGNANT
     Dosage: 400 MG, UNK
     Route: 048
     Dates: start: 20100908, end: 20120210
  5. PRIMPERAN TAB [Concomitant]
     Dosage: 10 MG, UNK
     Dates: start: 20111111, end: 20120210
  6. AMLODIPINE [Concomitant]
     Dosage: 10 UNK, UNK
     Dates: start: 20000101
  7. ACETAMINOPHEN [Concomitant]
     Dosage: 2 G, UNK
     Dates: start: 20120123, end: 20120210

REACTIONS (1)
  - SHOCK [None]
